FAERS Safety Report 5909161-6 (Version None)
Quarter: 2008Q4

REPORT INFORMATION
  Report Type: 
  Country: None (occurrence: None)
  Receive Date: 20081006
  Receipt Date: 20081002
  Transmission Date: 20090506
  Serious: Yes (Life-Threatening, Hospitalization)
  Sender: FDA-Public Use
  Company Number: US-WYE-H05908808

PATIENT
  Age: 51 Year
  Sex: Male
  Weight: 92.16 kg

DRUGS (3)
  1. PRISTIQ [Suspect]
     Indication: DEPRESSION
     Route: 048
     Dates: start: 20080813, end: 20080901
  2. CRESTOR [Interacting]
     Indication: BLOOD CHOLESTEROL INCREASED
     Route: 065
     Dates: start: 20080819
  3. CRESTOR [Interacting]
     Indication: HYPERCHOLESTEROLAEMIA

REACTIONS (5)
  - BLOOD GLUCOSE INCREASED [None]
  - CARDIAC ARREST [None]
  - DRUG INTERACTION [None]
  - MALAISE [None]
  - SYNCOPE [None]
